FAERS Safety Report 10708720 (Version 2)
Quarter: 2015Q1

REPORT INFORMATION
  Report Type: Spontaneous
  Country: JP (occurrence: JP)
  Receive Date: 20150113
  Receipt Date: 20150217
  Transmission Date: 20150721
  Serious: Yes (Hospitalization)
  Sender: FDA-Public Use
  Company Number: JP-BRISTOL-MYERS SQUIBB COMPANY-21212972

PATIENT
  Age: 60 Year
  Sex: Male

DRUGS (4)
  1. EVAMYL [Concomitant]
     Active Substance: LORMETAZEPAM
     Indication: PRODUCT USED FOR UNKNOWN INDICATION
     Dosage: UNK
     Route: 065
     Dates: start: 20110425, end: 20140511
  2. ABILIFY [Suspect]
     Active Substance: ARIPIPRAZOLE
     Indication: SCHIZOPHRENIA
     Dosage: 01AUG13-16MAY14  2011 18 MG/DAY WAS STARTED  01-AUG-2013, THE DOSE WAS REDUCED TO 6 MG/DAY
     Route: 048
     Dates: start: 2011, end: 20140511
  3. DEPAS [Concomitant]
     Active Substance: ETIZOLAM
     Indication: PRODUCT USED FOR UNKNOWN INDICATION
     Dosage: UNK
     Route: 065
     Dates: start: 20110425, end: 20140511
  4. NITRAZEPAM [Concomitant]
     Active Substance: NITRAZEPAM
     Indication: PRODUCT USED FOR UNKNOWN INDICATION
     Dosage: UNK
     Route: 065
     Dates: start: 20110425, end: 20140511

REACTIONS (8)
  - Agitation [Unknown]
  - Altered state of consciousness [Recovering/Resolving]
  - Glucose tolerance impaired [Recovering/Resolving]
  - Polydipsia [Unknown]
  - Rhabdomyolysis [Recovering/Resolving]
  - Gait disturbance [Unknown]
  - Seizure [Recovering/Resolving]
  - Hyperammonaemia [Recovered/Resolved]

NARRATIVE: CASE EVENT DATE: 20140511
